FAERS Safety Report 5865854-0 (Version None)
Quarter: 2008Q3

REPORT INFORMATION
  Report Type: 
  Country: None (occurrence: None)
  Receive Date: 20080829
  Receipt Date: 20080819
  Transmission Date: 20090109
  Serious: Yes (Other)
  Sender: FDA-Public Use
  Company Number: CA-ELI_LILLY_AND_COMPANY-CA200808003978

PATIENT
  Age: 22 Year
  Sex: Male

DRUGS (3)
  1. FORTEO [Suspect]
     Indication: OSTEOPOROSIS
     Dosage: 20 UG, DAILY (1/D)
     Route: 058
     Dates: start: 20080319
  2. DEFLAZACORT [Concomitant]
  3. CALCIUM WITH VITAMIN D /00944201/ [Concomitant]

REACTIONS (2)
  - FALL [None]
  - PELVIC FRACTURE [None]
